FAERS Safety Report 20854768 (Version 1)
Quarter: 2022Q2

REPORT INFORMATION
  Report Type: Spontaneous
  Country: US (occurrence: None)
  Receive Date: 20220519
  Receipt Date: 20220519
  Transmission Date: 20220720
  Serious: Yes (Hospitalization)
  Sender: FDA-Public Use
  Company Number: None

PATIENT
  Age: 61 Year
  Sex: Male

DRUGS (1)
  1. SUNITINIB [Suspect]
     Active Substance: SUNITINIB
     Dosage: 25MG DAILY ORAL
     Route: 048
     Dates: start: 202008

REACTIONS (2)
  - Hypotension [None]
  - Dehydration [None]

NARRATIVE: CASE EVENT DATE: 20220519
